FAERS Safety Report 4802921-4 (Version None)
Quarter: 2005Q4

REPORT INFORMATION
  Report Type: 
  Country: None (occurrence: None)
  Receive Date: 20051013
  Receipt Date: 20050929
  Transmission Date: 20060501
  Serious: Yes (Death, Hospitalization, Other)
  Sender: FDA-Public Use
  Company Number: 2005135147

PATIENT
  Age: 81 Year
  Sex: Female

DRUGS (5)
  1. CELECOXIB (CELECOXIB) [Suspect]
     Indication: ILL-DEFINED DISORDER
  2. CIPROFLOXACIN [Suspect]
     Indication: RESPIRATORY TRACT INFECTION
  3. NITROGLYCERIN [Suspect]
     Indication: CARDIAC FAILURE
  4. FUROSEMIDE [Suspect]
     Indication: ILL-DEFINED DISORDER
  5. RAMIPRIL [Suspect]
     Indication: ILL-DEFINED DISORDER

REACTIONS (9)
  - BLOOD POTASSIUM INCREASED [None]
  - DEHYDRATION [None]
  - IATROGENIC INJURY [None]
  - NEPHROPATHY TOXIC [None]
  - RENAL FAILURE ACUTE [None]
  - RESPIRATORY TRACT INFECTION [None]
  - SOMNOLENCE [None]
  - TUBULOINTERSTITIAL NEPHRITIS [None]
  - VASCULITIS [None]
